FAERS Safety Report 17786458 (Version 2)
Quarter: 2020Q2

REPORT INFORMATION
  Report Type: Spontaneous
  Country: DE (occurrence: DE)
  Receive Date: 20200514
  Receipt Date: 20200605
  Transmission Date: 20200714
  Serious: Yes (Death, Hospitalization, Other)
  Sender: FDA-Public Use
  Company Number: DE-AEGERION PHARMACEUTICAL, INC-AEGR004837

PATIENT

DRUGS (3)
  1. MYALEPTA [Suspect]
     Active Substance: METRELEPTIN
     Dosage: 10 MG, UNK
     Route: 065
     Dates: end: 20200504
  2. MYALEPTA [Suspect]
     Active Substance: METRELEPTIN
     Indication: PARTIAL LIPODYSTROPHY
     Dosage: 2.5 MG, UNK
     Route: 065
     Dates: start: 20190710
  3. INSULIN [Concomitant]
     Active Substance: INSULIN NOS
     Indication: TYPE 2 DIABETES MELLITUS

REACTIONS (2)
  - COVID-19 [Fatal]
  - Multiple organ dysfunction syndrome [Fatal]

NARRATIVE: CASE EVENT DATE: 20200504
